FAERS Safety Report 6828472-3 (Version None)
Quarter: 2010Q3

REPORT INFORMATION
  Report Type: 
  Country: None (occurrence: None)
  Receive Date: 20100709
  Receipt Date: 20070213
  Transmission Date: 20110219
  Serious: No
  Sender: FDA-Public Use
  Company Number: US-PFIZER INC-2007012421

PATIENT
  Sex: Female
  Weight: 52.16 kg

DRUGS (6)
  1. CHANTIX [Suspect]
     Indication: SMOKING CESSATION THERAPY
     Dates: start: 20070101
  2. LORTAB [Suspect]
  3. LIPITOR [Concomitant]
  4. ACETYLSALICYLIC ACID [Concomitant]
  5. CYMBALTA [Concomitant]
  6. XANAX [Concomitant]

REACTIONS (2)
  - CONSTIPATION [None]
  - DYSPEPSIA [None]
